FAERS Safety Report 10041115 (Version 3)
Quarter: 2015Q1

REPORT INFORMATION
  Report Type: Report from Study
  Country: CA (occurrence: CA)
  Receive Date: 20140327
  Receipt Date: 20150310
  Transmission Date: 20150720
  Serious: Yes (Disabling, Other)
  Sender: FDA-Public Use
  Company Number: PHHY2014CA036265

PATIENT
  Age: 59 Year
  Sex: Female

DRUGS (1)
  1. SANDOSTATIN LAR DEPOT [Suspect]
     Active Substance: OCTREOTIDE ACETATE
     Indication: ACROMEGALY
     Dosage: 20 MG, EVERY 2 WEEKS
     Route: 030
     Dates: start: 20090921

REACTIONS (8)
  - Influenza [Unknown]
  - Rhinorrhoea [Unknown]
  - Vomiting [Unknown]
  - Pain [Unknown]
  - Diarrhoea [Unknown]
  - Terminal state [Unknown]
  - Nasal congestion [Unknown]
  - Malaise [Unknown]

NARRATIVE: CASE EVENT DATE: 20150218
